FAERS Safety Report 13085506 (Version 1)
Quarter: 2017Q1

REPORT INFORMATION
  Report Type: Spontaneous
  Country: US (occurrence: US)
  Receive Date: 20170103
  Receipt Date: 20170103
  Transmission Date: 20170428
  Serious: Yes (Other)
  Sender: FDA-Public Use
  Company Number: None

PATIENT
  Age: 63 Year
  Sex: Female
  Weight: 99 kg

DRUGS (11)
  1. VARAPAMIL [Concomitant]
  2. PROTONIX [Concomitant]
     Active Substance: PANTOPRAZOLE SODIUM
  3. VITAMIN B12 [Concomitant]
     Active Substance: CYANOCOBALAMIN
  4. LEVOCETIRIZINE [Concomitant]
     Active Substance: LEVOCETIRIZINE
  5. CREON [Concomitant]
     Active Substance: PANCRELIPASE AMYLASE\PANCRELIPASE LIPASE\PANCRELIPASE PROTEASE
  6. VITAMIN D [Concomitant]
     Active Substance: CHOLECALCIFEROL
  7. ESCITALOPRAM 10 MG TABLET - OVAL AUROBINDO PHARM [Suspect]
     Active Substance: ESCITALOPRAM OXALATE
     Indication: DEPRESSION
     Dosage: ?          QUANTITY:1 TABLET(S);?
     Route: 048
     Dates: start: 20161211, end: 20161222
  8. BENEDRIL [Concomitant]
  9. BABY ASPIRIN [Concomitant]
     Active Substance: ASPIRIN
  10. BIOTIN [Concomitant]
     Active Substance: BIOTIN
  11. SYNTHROID [Concomitant]
     Active Substance: LEVOTHYROXINE SODIUM

REACTIONS (7)
  - Balance disorder [None]
  - Depression [None]
  - Product substitution issue [None]
  - Dizziness [None]
  - Pruritus generalised [None]
  - Mood swings [None]
  - Therapy cessation [None]

NARRATIVE: CASE EVENT DATE: 20161219
